FAERS Safety Report 6529597-2 (Version None)
Quarter: 2010Q1

REPORT INFORMATION
  Report Type: 
  Country: None (occurrence: None)
  Receive Date: 20100107
  Receipt Date: 20091230
  Transmission Date: 20100710
  Serious: Yes (Death, Hospitalization)
  Sender: FDA-Public Use
  Company Number: US-SANOFI-AVENTIS-2009SA011732

PATIENT
  Age: 67 Year
  Sex: Male

DRUGS (6)
  1. LOVENOX [Suspect]
     Route: 065
     Dates: start: 20090501
  2. LOVENOX [Suspect]
     Route: 065
     Dates: start: 20090501
  3. LOVENOX [Suspect]
     Route: 065
     Dates: start: 20090101, end: 20091125
  4. LOVENOX [Suspect]
     Route: 065
     Dates: start: 20090101, end: 20091125
  5. VITAMINS [Concomitant]
  6. PROTEIN SUPPLEMENTS [Concomitant]

REACTIONS (5)
  - ASTHENIA [None]
  - CHILLS [None]
  - CONDITION AGGRAVATED [None]
  - PULMONARY EMBOLISM [None]
  - RENAL FAILURE ACUTE [None]
